FAERS Safety Report 6903677-1 (Version None)
Quarter: 2010Q3

REPORT INFORMATION
  Report Type: 
  Country: None (occurrence: None)
  Receive Date: 20100803
  Receipt Date: 20081118
  Transmission Date: 20110219
  Serious: No
  Sender: FDA-Public Use
  Company Number: US-PFIZER INC-2008098402

PATIENT
  Sex: Female

DRUGS (6)
  1. LYRICA [Suspect]
     Route: 048
     Dates: start: 20080201
  2. ADDERALL 10 [Concomitant]
  3. ALPRAZOLAM [Concomitant]
  4. EFFEXOR XR [Concomitant]
  5. OXYCONTIN [Concomitant]
  6. LAMICTAL [Concomitant]

REACTIONS (1)
  - DRUG SCREEN POSITIVE [None]
